FAERS Safety Report 24359211 (Version 1)
Quarter: 2024Q3

REPORT INFORMATION
  Report Type: Spontaneous
  Country: FR (occurrence: FR)
  Receive Date: 20240924
  Receipt Date: 20240924
  Transmission Date: 20241017
  Serious: No
  Sender: Unknown Manufacturer
  Company Number: FR-ROCHE-3330299

PATIENT

DRUGS (2)
  1. GAVRETO [Suspect]
     Active Substance: PRALSETINIB
     Indication: Thyroid cancer
     Dosage: TREATMENT PERIOD: 3 MONTHS, TAKE 1 HOUR BEFORE FOOD OR 2 HOURS AFTER FOOD (400 MG, 1 IN 6 MONTH)
     Route: 048
  2. GAVRETO [Suspect]
     Active Substance: PRALSETINIB
     Indication: Medullary thyroid cancer

REACTIONS (2)
  - Off label use [Unknown]
  - Dry mouth [Unknown]
